FAERS Safety Report 24563918 (Version 1)
Quarter: 2024Q4

REPORT INFORMATION
  Report Type: Spontaneous
  Country: DE (occurrence: DE)
  Receive Date: 20241030
  Receipt Date: 20241030
  Transmission Date: 20250114
  Serious: Yes (Other)
  Sender: MERZ
  Company Number: DE-Merz Pharmaceuticals GmbH-2024100000212

PATIENT

DRUGS (1)
  1. XEOMIN [Suspect]
     Active Substance: INCOBOTULINUMTOXINA
     Indication: Muscle spasticity
     Dosage: 300 INTERNATIONAL UNIT
     Dates: start: 20241011, end: 20241011

REACTIONS (7)
  - Mobility decreased [Recovering/Resolving]
  - Lhermitte^s sign [Recovering/Resolving]
  - Cystitis [Recovering/Resolving]
  - Functional gastrointestinal disorder [Recovering/Resolving]
  - Incontinence [Recovering/Resolving]
  - Influenza like illness [Recovering/Resolving]
  - Injection site pain [Recovering/Resolving]

NARRATIVE: CASE EVENT DATE: 20241014
